FAERS Safety Report 7582963-9 (Version None)
Quarter: 2011Q2

REPORT INFORMATION
  Report Type: 
  Country: None (occurrence: None)
  Receive Date: 20110527
  Receipt Date: 20101110
  Transmission Date: 20111010
  Serious: Yes (Hospitalization, Other)
  Sender: FDA-Public Use
  Company Number: US201005000620

PATIENT
  Sex: Male

DRUGS (2)
  1. BYETTA [Suspect]
  2. EXENATIDE UNK STRENGTH PEN, DISPOSABLE DEVICE (EXENATIDE PEN (UNKNOWN [Concomitant]

REACTIONS (2)
  - PANCREATITIS [None]
  - RENAL FAILURE ACUTE [None]
